FAERS Safety Report 16056731 (Version 4)
Quarter: 2020Q4

REPORT INFORMATION
  Report Type: Report from Study
  Country: GB (occurrence: GB)
  Receive Date: 20190311
  Receipt Date: 20201012
  Transmission Date: 20210113
  Serious: Yes (Death, Hospitalization, Other)
  Sender: FDA-Public Use
  Company Number: GB-PFIZER INC-2019098131

PATIENT
  Age: 65 Year
  Sex: Female

DRUGS (11)
  1. TRASTUZUMAB. [Suspect]
     Active Substance: TRASTUZUMAB
     Indication: BREAST CANCER METASTATIC
     Dosage: 472.5 MG, EVERY 3 WEEKS (LOADING DOSE)
     Route: 042
     Dates: start: 20150316, end: 20150316
  2. COCODAMOL [Suspect]
     Active Substance: ACETAMINOPHEN\CODEINE PHOSPHATE
     Indication: BACK PAIN
     Dosage: UNK, UNK (30/500 MG)
     Route: 048
     Dates: start: 20151023, end: 20151023
  3. TRASTUZUMAB EMTANSINE [Suspect]
     Active Substance: ADO-TRASTUZUMAB EMTANSINE
     Indication: BREAST CANCER METASTATIC
     Dosage: 210 MG, EVERY 3 WEEKS
     Route: 042
     Dates: start: 20150814, end: 20151026
  4. PERTUZUMAB. [Suspect]
     Active Substance: PERTUZUMAB
     Dosage: 420 MG, EVERY 3 WEEKS MAINTENANCE DOSE
     Route: 042
     Dates: start: 20150407, end: 20150706
  5. ADCAL D3 [Concomitant]
     Active Substance: CALCIUM CARBONATE\CHOLECALCIFEROL
     Indication: METASTASES TO BONE
     Dosage: 2 DF, 2X/DAY
     Route: 048
     Dates: start: 20150917, end: 201510
  6. TRASTUZUMAB. [Suspect]
     Active Substance: TRASTUZUMAB
     Dosage: 357 MG, EVERY 3 WEEKS (MAINTENANCE DOSE)
     Route: 042
     Dates: start: 20150407, end: 20150706
  7. BIMATOPROST. [Suspect]
     Active Substance: BIMATOPROST
     Indication: GLAUCOMA
     Dosage: 1 UNK, 1X/DAY
     Route: 047
     Dates: start: 201208, end: 20151206
  8. DOCETAXEL. [Suspect]
     Active Substance: DOCETAXEL
     Indication: BREAST CANCER METASTATIC
     Dosage: 120 MG, CYCLIC EVERY 3 WEEKS
     Route: 042
     Dates: start: 20150317, end: 20150407
  9. TIMODINE [BENZALKONIUM CHLORIDE;DIMETICONE;HYDROCORTISONE;NYSTATIN] [Concomitant]
     Dosage: UNK
     Route: 065
     Dates: start: 20150721, end: 2015
  10. COCODAMOL [Suspect]
     Active Substance: ACETAMINOPHEN\CODEINE PHOSPHATE
     Indication: PAIN IN EXTREMITY
     Dosage: 4 UNK, 1X/DAY (30/500 MG)
     Route: 048
     Dates: start: 20150917, end: 201511
  11. PERTUZUMAB. [Suspect]
     Active Substance: PERTUZUMAB
     Indication: BREAST CANCER METASTATIC
     Dosage: 840 MG, UNK (LOADING DOSE)
     Route: 042
     Dates: start: 20150316, end: 20150316

REACTIONS (25)
  - Diarrhoea [Recovered/Resolved]
  - Oropharyngeal pain [Recovered/Resolved]
  - Lymphoedema [Unknown]
  - Back pain [Recovered/Resolved with Sequelae]
  - Painful respiration [Recovered/Resolved with Sequelae]
  - Mastitis [Recovered/Resolved with Sequelae]
  - Breast haemorrhage [Recovered/Resolved with Sequelae]
  - Breast inflammation [Recovered/Resolved with Sequelae]
  - Vomiting [Recovered/Resolved]
  - Pain in extremity [Unknown]
  - Blister [Unknown]
  - Nausea [Unknown]
  - Pain [Unknown]
  - Constipation [Recovered/Resolved]
  - Vomiting [Recovered/Resolved]
  - Breast discharge [Not Recovered/Not Resolved]
  - Fatigue [Recovered/Resolved with Sequelae]
  - Pleural effusion [Recovered/Resolved with Sequelae]
  - Headache [Recovered/Resolved]
  - Breast pain [Recovered/Resolved with Sequelae]
  - Fatigue [Unknown]
  - Anaemia [Recovered/Resolved]
  - Neoplasm progression [Fatal]
  - Constipation [Recovered/Resolved]
  - Skin disorder [Recovered/Resolved with Sequelae]

NARRATIVE: CASE EVENT DATE: 20150626
